FAERS Safety Report 26069748 (Version 1)
Quarter: 2025Q4

REPORT INFORMATION
  Report Type: Spontaneous
  Country: US (occurrence: US)
  Receive Date: 20251120
  Receipt Date: 20251120
  Transmission Date: 20260118
  Serious: No
  Sender: BAUSCH AND LOMB
  Company Number: US-BAUSCHBL-2025BNL032034

PATIENT
  Age: 75 Year
  Sex: Female

DRUGS (1)
  1. MIEBO [Suspect]
     Active Substance: PERFLUOROHEXYLOCTANE
     Indication: Dry eye
     Dosage: 1 DROP INTO EACH EYE FOUR TIMES PER DAY
     Route: 047
     Dates: start: 202511, end: 20251111

REACTIONS (5)
  - Burning sensation [Recovered/Resolved]
  - Throat clearing [Unknown]
  - Eye infection [Unknown]
  - Eye discharge [Unknown]
  - Vision blurred [Unknown]

NARRATIVE: CASE EVENT DATE: 20251101
